FAERS Safety Report 6130867-0 (Version None)
Quarter: 2009Q1

REPORT INFORMATION
  Report Type: 
  Country: None (occurrence: None)
  Receive Date: 20090325
  Receipt Date: 20090317
  Transmission Date: 20090719
  Serious: Yes (Hospitalization)
  Sender: FDA-Public Use
  Company Number: US-BAYER-200915770NA

PATIENT
  Age: 54 Year
  Sex: Female

DRUGS (4)
  1. SORAFENIB [Suspect]
     Indication: BREAST CANCER
     Route: 048
  2. DOXORUBICIN HCL [Suspect]
     Indication: BREAST CANCER
     Dates: start: 20080108
  3. CYCLOPHOSPHAMIDE [Suspect]
     Indication: BREAST CANCER
     Dates: start: 20080108
  4. PACLITAXEL [Suspect]
     Indication: BREAST CANCER

REACTIONS (1)
  - BARTHOLIN'S ABSCESS [None]
